FAERS Safety Report 9644884 (Version 1)
Quarter: 2013Q4

REPORT INFORMATION
  Report Type: Report from Study
  Country: US (occurrence: US)
  Receive Date: 20131025
  Receipt Date: 20131025
  Transmission Date: 20140711
  Serious: Yes (Other)
  Sender: FDA-Public Use
  Company Number: PHEH2013US022189

PATIENT
  Age: 75 Year
  Sex: Male

DRUGS (17)
  1. GLEEVEC [Suspect]
     Indication: CHRONIC MYELOID LEUKAEMIA
     Dosage: 400 MG, DAILY
     Route: 048
     Dates: start: 20070830
  2. ALPRAZOLAM [Concomitant]
     Dosage: UNK UKN, UNK
  3. ASPIRIN [Concomitant]
     Dosage: UNK UKN, UNK
  4. CARTIA XT [Concomitant]
     Dosage: UNK UKN, UNK
  5. NITROGLYCERIN [Concomitant]
     Dosage: UNK UKN, UNK
  6. LIPITOR [Concomitant]
     Dosage: UNK UKN, UNK
  7. CHLORTAN [Concomitant]
     Dosage: UNK UKN, UNK
  8. NIASPAN [Concomitant]
     Dosage: UNK UKN, UNK
  9. ALBUTEROL [Concomitant]
     Dosage: UNK UKN, UNK
  10. HYDROCHLOROTHIAZIDE [Concomitant]
     Dosage: UNK UKN, UNK
  11. COZAAR [Concomitant]
     Dosage: UNK UKN, UNK
  12. SYNTHROID [Concomitant]
     Dosage: UNK UKN, UNK
  13. FERROUS SULFATE [Concomitant]
     Dosage: UNK UKN, UNK
  14. ADVAIR [Concomitant]
     Dosage: UNK UKN, UNK
  15. PREDNISONE [Concomitant]
     Dosage: UNK UKN, UNK
  16. FUROSEMIDE [Concomitant]
     Dosage: UNK UKN, UNK
  17. KLOR-CON [Concomitant]
     Dosage: UNK UKN, UNK

REACTIONS (3)
  - Asthma [Not Recovered/Not Resolved]
  - Dyspnoea [Not Recovered/Not Resolved]
  - Cough [Not Recovered/Not Resolved]
